FAERS Safety Report 4949734-0 (Version None)
Quarter: 2006Q1

REPORT INFORMATION
  Report Type: 
  Country: None (occurrence: None)
  Receive Date: 20060315
  Receipt Date: 20060228
  Transmission Date: 20060701
  Serious: Yes (Hospitalization)
  Sender: FDA-Public Use
  Company Number: 200410363BCC

PATIENT
  Age: 61 Year
  Sex: Female
  Weight: 93.441 kg

DRUGS (8)
  1. ALEVE [Suspect]
     Indication: BACK PAIN
     Dosage: 440 M G, TID, ORAL
     Route: 048
     Dates: start: 20031001
  2. TYLENOL W/ CODEINE [Suspect]
  3. ZESTRIL [Concomitant]
  4. CARDIZEM [Concomitant]
  5. MICRONASE [Concomitant]
  6. TYLENOL W/ CODEINE [Concomitant]
  7. TENORETIC 100 [Concomitant]
  8. LIPITOR [Concomitant]

REACTIONS (5)
  - GASTRIC DISORDER [None]
  - PAIN [None]
  - RECTAL HAEMORRHAGE [None]
  - REFUSAL OF TREATMENT BY PATIENT [None]
  - VAGINAL HAEMORRHAGE [None]
